FAERS Safety Report 4633979-3 (Version None)
Quarter: 2005Q2

REPORT INFORMATION
  Report Type: 
  Country: None (occurrence: None)
  Receive Date: 20050412
  Receipt Date: 20050412
  Transmission Date: 20051028
  Serious: Yes (Hospitalization)
  Sender: FDA-Public Use
  Company Number: None

PATIENT
  Age: 42 Year
  Sex: Male
  Weight: 63.5036 kg

DRUGS (2)
  1. GABAPENTIN [Suspect]
  2. GABITRIL [Suspect]
     Indication: DELIRIUM

REACTIONS (3)
  - DELIRIUM [None]
  - DEPRESSION [None]
  - MENTAL STATUS CHANGES [None]
